FAERS Safety Report 5676057-7 (Version None)
Quarter: 2008Q1

REPORT INFORMATION
  Report Type: 
  Country: None (occurrence: None)
  Receive Date: 20080321
  Receipt Date: 20080312
  Transmission Date: 20080703
  Serious: Yes (Other)
  Sender: FDA-Public Use
  Company Number: JP-ROCHE-548140

PATIENT
  Age: 8 Year
  Sex: Male
  Weight: 27 kg

DRUGS (2)
  1. TAMIFLU [Suspect]
     Route: 048
     Dates: start: 20080212, end: 20080212
  2. CALONAL [Concomitant]
     Dosage: TAKEN AS NEEDED.
     Route: 048
     Dates: start: 20080212

REACTIONS (1)
  - ABNORMAL BEHAVIOUR [None]
